FAERS Safety Report 10057057 (Version 1)
Quarter: 2014Q2

REPORT INFORMATION
  Report Type: Spontaneous
  Country: US (occurrence: US)
  Receive Date: 20140403
  Receipt Date: 20140403
  Transmission Date: 20141212
  Serious: Yes (Other)
  Sender: FDA-Public Use
  Company Number: US-TEVA-473121USA

PATIENT
  Age: 37 Year
  Sex: Female
  Weight: 127.57 kg

DRUGS (8)
  1. PARAGARD 380A [Suspect]
     Indication: CONTRACEPTION
     Route: 015
     Dates: start: 20130906
  2. LOSARTAN POTASSIUM [Concomitant]
     Indication: HYPERTENSION
     Dosage: 50 MILLIGRAM DAILY;
     Route: 048
     Dates: start: 201105
  3. MOBIC [Concomitant]
     Indication: BACK PAIN
     Dosage: 15 MILLIGRAM DAILY;
     Route: 048
     Dates: start: 201307
  4. ATENOLOL [Concomitant]
     Indication: HYPERTENSION
     Dosage: 100 MILLIGRAM DAILY;
     Route: 048
     Dates: start: 20090720
  5. SINGULAIR [Concomitant]
     Indication: RHINITIS ALLERGIC
     Dosage: 10 MILLIGRAM DAILY;
     Route: 048
     Dates: start: 20080815
  6. ZOLOFT [Concomitant]
     Indication: DEPRESSION
     Dosage: 100 MILLIGRAM DAILY;
     Route: 048
     Dates: start: 20080815
  7. FLONASE [Concomitant]
     Indication: RHINITIS ALLERGIC
     Dosage: 50 MICROGRAM DAILY;
     Dates: start: 200811
  8. PRO-AIR HFA [Concomitant]
     Indication: ASTHMA
     Dates: start: 201304

REACTIONS (2)
  - Device dislocation [Recovered/Resolved]
  - Vaginal discharge [Recovered/Resolved]
